FAERS Safety Report 9399806 (Version 2)
Quarter: 2013Q4

REPORT INFORMATION
  Report Type: Report from Study
  Country: BR (occurrence: BR)
  Receive Date: 20130715
  Receipt Date: 20131002
  Transmission Date: 20140711
  Serious: Yes (Other)
  Sender: FDA-Public Use
  Company Number: PHHY2013BR074060

PATIENT
  Age: 88 Year
  Sex: Male

DRUGS (3)
  1. EXELON PATCH [Suspect]
     Indication: AMNESIA
     Dosage: 4.6 MG, DAILY
     Route: 062
     Dates: start: 201303
  2. FLUXENE [Concomitant]
     Indication: DEPRESSION
     Dosage: 1 DF, QD
     Route: 048
  3. CHOLESTEROL- AND TRIGLYCERIDE REDUCERS [Concomitant]
     Indication: BLOOD CHOLESTEROL
     Dosage: 1 DF, QD
     Route: 048
     Dates: start: 201303

REACTIONS (6)
  - Upper limb fracture [Recovering/Resolving]
  - Fall [Recovering/Resolving]
  - Amnesia [Not Recovered/Not Resolved]
  - Application site erythema [Recovering/Resolving]
  - Drug ineffective [Unknown]
  - Memory impairment [Unknown]
